FAERS Safety Report 7924541-5 (Version None)
Quarter: 2011Q4

REPORT INFORMATION
  Report Type: 
  Country: None (occurrence: None)
  Receive Date: 20111117
  Receipt Date: 20110323
  Transmission Date: 20120403
  Serious: No
  Sender: FDA-Public Use
  Company Number: US-AMGEN-USASP2011015826

PATIENT
  Sex: Female
  Weight: 76.644 kg

DRUGS (14)
  1. PREDNISONE TAB [Concomitant]
     Dosage: 1 MG, UNK
  2. ASPIRIN [Concomitant]
     Dosage: 325 MG, UNK
  3. LISINOPRIL [Concomitant]
     Dosage: 2.5 MG, UNK
  4. GLYBURIDE [Concomitant]
     Dosage: 1.25 MG, UNK
  5. ENBREL [Suspect]
     Indication: PRODUCT USED FOR UNKNOWN INDICATION
     Dosage: 50 MG, QWK
     Route: 058
  6. FUROSEMIDE [Concomitant]
     Dosage: 20 MG, UNK
  7. HYDROXYZINE HCL [Concomitant]
     Dosage: 10 MG, UNK
  8. TRAMADOLE [Concomitant]
     Dosage: 50 MG, UNK
  9. STOOL SOFTENER [Concomitant]
     Dosage: 100 MG, UNK
  10. PANTOPRAZOLE [Concomitant]
     Dosage: 20 MG, UNK
  11. PRAVASTATIN                        /00880402/ [Concomitant]
     Dosage: 10 MG, UNK
  12. METFORMIN HCL [Concomitant]
     Dosage: 500 MG, UNK
  13. ATENOLOL [Concomitant]
     Dosage: 25 MG, UNK
  14. PLAVIX [Concomitant]
     Dosage: 75 MG, UNK

REACTIONS (1)
  - GENERALISED ERYTHEMA [None]
